FAERS Safety Report 12400156 (Version 1)
Quarter: 2016Q2

REPORT INFORMATION
  Report Type: Spontaneous
  Country: IN (occurrence: IN)
  Receive Date: 20160524
  Receipt Date: 20160524
  Transmission Date: 20160815
  Serious: Yes (Hospitalization, Other)
  Sender: FDA-Public Use
  Company Number: IN-TAKEDA-2016TJP010541

PATIENT
  Age: 65 Year
  Sex: Male

DRUGS (3)
  1. GLIMEPIRIDE. [Suspect]
     Active Substance: GLIMEPIRIDE
     Indication: DIABETES MELLITUS
     Dosage: 2 MG, UNK
     Route: 048
  2. PIOGLITAZONE. [Suspect]
     Active Substance: PIOGLITAZONE
     Indication: DIABETES MELLITUS
     Dosage: 30 MG, UNK
     Route: 048
  3. METFORMIN [Suspect]
     Active Substance: METFORMIN HYDROCHLORIDE
     Indication: DIABETES MELLITUS
     Dosage: 1 G, UNK
     Route: 048

REACTIONS (2)
  - Pulmonary oedema [Recovering/Resolving]
  - Cardiac failure congestive [Recovering/Resolving]
